FAERS Safety Report 20408530 (Version 2)
Quarter: 2022Q1

REPORT INFORMATION
  Report Type: Spontaneous
  Country: None (occurrence: US)
  Receive Date: 20220201
  Receipt Date: 20220211
  Transmission Date: 20220423
  Serious: Yes (Hospitalization, Other)
  Sender: FDA-Public Use
  Company Number: US-Sunstar Americas Inc.-2124487

PATIENT
  Sex: Male
  Weight: 76.2 kg

DRUGS (45)
  1. PAROEX [Suspect]
     Active Substance: CHLORHEXIDINE GLUCONATE
     Indication: Pharyngitis
     Route: 002
     Dates: start: 20201007, end: 20201028
  2. ACETAMINOPHEN [Concomitant]
     Active Substance: ACETAMINOPHEN
     Dates: start: 20201011, end: 20201014
  3. ACETAMINOPHEN [Concomitant]
     Active Substance: ACETAMINOPHEN
     Dates: start: 20201008, end: 20201008
  4. AMPICILLIN AND SULBACTAM [Concomitant]
     Active Substance: AMPICILLIN SODIUM\SULBACTAM SODIUM
     Dates: start: 20201010, end: 20201012
  5. ACETAMINOPHEN [Concomitant]
     Active Substance: ACETAMINOPHEN
     Dates: start: 20201009, end: 20201013
  6. SODIUM CHLORIDE [Concomitant]
     Active Substance: SODIUM CHLORIDE
     Dates: start: 20201010, end: 20201012
  7. SODIUM CHLORIDE [Concomitant]
     Active Substance: SODIUM CHLORIDE
     Dates: start: 20201014, end: 20201014
  8. BRILINTA [Concomitant]
     Active Substance: TICAGRELOR
     Dates: start: 20201007, end: 20201014
  9. SODIUM BICARBONATE [Concomitant]
     Active Substance: SODIUM BICARBONATE
     Dates: start: 20201007, end: 20201007
  10. BISACODYL [Concomitant]
     Active Substance: BISACODYL
     Dates: start: 20201007, end: 20201007
  11. ASPIRIN [Concomitant]
     Active Substance: ASPIRIN
     Dates: start: 20201007, end: 20201014
  12. ATORVASTATIN CALCIUM [Concomitant]
     Active Substance: ATORVASTATIN CALCIUM
     Dates: start: 20201014, end: 20201014
  13. DEXTROSE [Concomitant]
     Active Substance: DEXTROSE
     Dates: start: 20201012, end: 20201014
  14. DEXTROSE [Concomitant]
     Active Substance: DEXTROSE
     Dates: start: 20201008, end: 20201008
  15. CEFEPIME [Concomitant]
     Active Substance: CEFEPIME HYDROCHLORIDE
     Dates: start: 20201012, end: 20201014
  16. KENGREAL [Concomitant]
     Active Substance: CANGRELOR
     Dates: start: 20201008, end: 20201008
  17. CEFTRIAXONE [Concomitant]
     Active Substance: CEFTRIAXONE
     Dates: start: 20201014, end: 20201014
  18. SODIUM BICARBONATE [Concomitant]
     Active Substance: SODIUM BICARBONATE
     Dates: start: 20201007, end: 20201007
  19. SENNA LIQUID [Concomitant]
     Active Substance: SENNOSIDES
     Dates: start: 20201007, end: 20201014
  20. DOCUSATE SODIUM [Concomitant]
     Active Substance: DOCUSATE SODIUM
     Dates: start: 20121008, end: 20201014
  21. EPTIFIBATIDE [Concomitant]
     Active Substance: EPTIFIBATIDE
     Dates: start: 20201008, end: 20201008
  22. FAMOTIDINE [Concomitant]
     Active Substance: FAMOTIDINE
     Dates: start: 20201008, end: 20201014
  23. CISATRACURIUM [Concomitant]
     Active Substance: CISATRACURIUM
     Dates: start: 20201008, end: 20201008
  24. POTASSIUM CHLORIDE [Concomitant]
     Active Substance: POTASSIUM CHLORIDE
     Dates: start: 20201011, end: 20201014
  25. PROPOFOL [Concomitant]
     Active Substance: PROPOFOL
     Dates: start: 20201008, end: 20201014
  26. MIRALAX [Concomitant]
     Active Substance: POLYETHYLENE GLYCOL 3350
     Dates: start: 20201011, end: 20201014
  27. FENTANYL [Concomitant]
     Active Substance: FENTANYL
     Dates: start: 20201008, end: 20201014
  28. LIDOCAINE [Concomitant]
     Active Substance: LIDOCAINE
     Dates: start: 20201007, end: 20201007
  29. FUROSEMIDE [Concomitant]
     Active Substance: FUROSEMIDE
     Dates: start: 20201007, end: 20201014
  30. INSULIN LISPRO [Concomitant]
     Active Substance: INSULIN LISPRO
     Dates: start: 20201011, end: 20201014
  31. HEPARIN [Concomitant]
     Active Substance: HEPARIN SODIUM
     Dates: start: 20201007, end: 20201007
  32. HEPARIN [Concomitant]
     Active Substance: HEPARIN SODIUM
     Dates: start: 20201008, end: 20201014
  33. LEVETIRACETAM [Concomitant]
     Active Substance: LEVETIRACETAM
     Dates: start: 20201012, end: 20201014
  34. LACOSAMIDE [Concomitant]
     Active Substance: LACOSAMIDE
     Dates: start: 20201014, end: 20201014
  35. MAGNESIUM SULFATE [Concomitant]
     Active Substance: MAGNESIUM SULFATE
     Dates: start: 20201008, end: 20201008
  36. MAGNESIUM CITRATE [Concomitant]
     Active Substance: MAGNESIUM CITRATE
     Dates: start: 20201014, end: 20201014
  37. PNEUMOVAX 23 [Concomitant]
     Active Substance: PNEUMOCOCCAL VACCINE, POLYVALENT 23
     Dates: start: 20201008, end: 20201008
  38. NOREPINEPHRINE [Concomitant]
     Active Substance: NOREPINEPHRINE
     Dates: start: 20201008, end: 20201009
  39. MILRINONE LACTATE IN DEXTROSE [Concomitant]
     Active Substance: MILRINONE LACTATE
     Dates: start: 20201008, end: 20201009
  40. MIDAZOLAM [Concomitant]
     Active Substance: MIDAZOLAM
     Dates: start: 20201013, end: 20201014
  41. MEPERIDINE HYDROCHLORIDE [Concomitant]
     Active Substance: MEPERIDINE HYDROCHLORIDE
     Dates: start: 20201008, end: 20201008
  42. SODIUM CHLORIDE [Concomitant]
     Active Substance: SODIUM CHLORIDE
     Dates: start: 20201014, end: 20201014
  43. DEXTROSE [Concomitant]
     Active Substance: DEXTROSE
     Dates: start: 20201012, end: 20201014
  44. METOPROLOL [Concomitant]
     Active Substance: METOPROLOL
     Dates: start: 20201012, end: 20201014
  45. MUPIROCIN [Concomitant]
     Active Substance: MUPIROCIN
     Dates: start: 20201008, end: 20201009

REACTIONS (2)
  - Cardiac arrest [Unknown]
  - Burkholderia test positive [Unknown]

NARRATIVE: CASE EVENT DATE: 20201007
